FAERS Safety Report 24903335 (Version 1)
Quarter: 2025Q1

REPORT INFORMATION
  Report Type: Spontaneous
  Country: US (occurrence: US)
  Receive Date: 20250130
  Receipt Date: 20250130
  Transmission Date: 20250409
  Serious: Yes (Other)
  Sender: CIPLA
  Company Number: US-CIPLA LTD.-2024US08509

PATIENT

DRUGS (5)
  1. CITALOPRAM [Interacting]
     Active Substance: CITALOPRAM
     Route: 064
  2. QUETIAPINE [Interacting]
     Active Substance: QUETIAPINE
     Route: 064
  3. LEVOTHYROXINE [Interacting]
     Active Substance: LEVOTHYROXINE
     Route: 064
  4. URSODIOL [Interacting]
     Active Substance: URSODIOL
     Route: 064
  5. METHADONE [Interacting]
     Active Substance: METHADONE HYDROCHLORIDE
     Route: 064

REACTIONS (5)
  - Tonic posturing [Unknown]
  - Drug interaction [Unknown]
  - Foetal exposure during pregnancy [Unknown]
  - Premature baby [Unknown]
  - Hypertonia [Unknown]
